FAERS Safety Report 11773952 (Version 1)
Quarter: 2015Q4

REPORT INFORMATION
  Report Type: Spontaneous
  Country: US (occurrence: US)
  Receive Date: 20151124
  Receipt Date: 20151124
  Transmission Date: 20160304
  Serious: No
  Sender: FDA-Public Use
  Company Number: US-PERNIX THERAPEUTICS-2015PT000169

PATIENT

DRUGS (4)
  1. ALENDRONATE [Concomitant]
     Active Substance: ALENDRONATE SODIUM
     Indication: SENILE OSTEOPOROSIS
     Dosage: UNK
     Dates: start: 2013
  2. HYDROCODONE BITARTRATE. [Suspect]
     Active Substance: HYDROCODONE BITARTRATE
     Indication: PAIN
     Dosage: UNK
  3. LYRICA [Suspect]
     Active Substance: PREGABALIN
     Indication: PAIN
     Dosage: 50 MG, TWICE DAILY
     Route: 048
     Dates: start: 201507, end: 20150729
  4. OTHER THERAPEUTIC PRODUCTS [Concomitant]
     Active Substance: UNSPECIFIED INGREDIENT
     Indication: HYPERTENSION
     Dosage: 10 MG, AS NEEDED

REACTIONS (1)
  - Drug ineffective [Not Recovered/Not Resolved]

NARRATIVE: CASE EVENT DATE: 201507
